FAERS Safety Report 13832449 (Version 1)
Quarter: 2017Q3

REPORT INFORMATION
  Report Type: Spontaneous
  Country: US (occurrence: US)
  Receive Date: 20170803
  Receipt Date: 20170803
  Transmission Date: 20171127
  Serious: No
  Sender: FDA-Public Use
  Company Number: US-ROCHE-1364551

PATIENT
  Sex: Female

DRUGS (9)
  1. ASPIRIN. [Concomitant]
     Active Substance: ASPIRIN
     Route: 048
  2. BONIVA [Suspect]
     Active Substance: IBANDRONATE SODIUM
     Indication: FRACTURE
  3. CARAFATE [Concomitant]
     Active Substance: SUCRALFATE
     Dosage: TAKE 30 MINUTES BEFORE EVERY MEAL
     Route: 048
  4. CLARITIN [Concomitant]
     Active Substance: LORATADINE
     Indication: HYPERSENSITIVITY
  5. LISINOPRIL. [Concomitant]
     Active Substance: LISINOPRIL
     Indication: HYPERTENSION
  6. BONIVA [Suspect]
     Active Substance: IBANDRONATE SODIUM
     Indication: OSTEOPOROSIS
     Route: 048
     Dates: start: 201310
  7. TEGRETOL [Concomitant]
     Active Substance: CARBAMAZEPINE
     Indication: FACIAL NEURALGIA
  8. FOSAMAX [Concomitant]
     Active Substance: ALENDRONATE SODIUM
  9. ACTONEL [Concomitant]
     Active Substance: RISEDRONATE SODIUM

REACTIONS (3)
  - Nausea [Unknown]
  - Abdominal pain upper [Not Recovered/Not Resolved]
  - Gastrooesophageal reflux disease [Unknown]
